FAERS Safety Report 6784506-6 (Version None)
Quarter: 2010Q2

REPORT INFORMATION
  Report Type: 
  Country: None (occurrence: None)
  Receive Date: 20100622
  Receipt Date: 20100615
  Transmission Date: 20101027
  Serious: Yes (Hospitalization)
  Sender: FDA-Public Use
  Company Number: US-BRISTOL-MYERS SQUIBB COMPANY-15149941

PATIENT
  Age: 29 Year
  Sex: Male
  Weight: 75 kg

DRUGS (3)
  1. EFAVIRENZ TABS [Suspect]
     Indication: HIV INFECTION
     Dosage: 08JUL08-22APR10(655 DAYS). 27APR10-ONG DRUG INTERRUPTED ON 22APR10 AND RESTARTED ON 27APR10
     Route: 048
     Dates: start: 20080708
  2. TRUVADA [Suspect]
     Indication: HIV INFECTION
     Dosage: 1 DF= 1 DOSE. TAB
     Route: 048
     Dates: start: 20080708
  3. PAROXETINE HCL [Concomitant]

REACTIONS (2)
  - PANIC ATTACK [None]
  - SELF-INJURIOUS IDEATION [None]
